FAERS Safety Report 20137348 (Version 8)
Quarter: 2022Q1

REPORT INFORMATION
  Report Type: Report from Study
  Country: US (occurrence: US)
  Receive Date: 20211201
  Receipt Date: 20220324
  Transmission Date: 20220423
  Serious: Yes (Other)
  Sender: FDA-Public Use
  Company Number: US-BIOGEN-2021BI01005556

PATIENT
  Age: 76 Year
  Sex: Female
  Weight: 45.8 kg

DRUGS (8)
  1. ADUCANUMAB [Suspect]
     Active Substance: ADUCANUMAB
     Indication: Dementia Alzheimer^s type
     Route: 042
     Dates: start: 20200922, end: 20210407
  2. ADUCANUMAB [Suspect]
     Active Substance: ADUCANUMAB
     Route: 042
     Dates: start: 20210824, end: 20211122
  3. SERTRALINE [Concomitant]
     Active Substance: SERTRALINE HYDROCHLORIDE
     Indication: Anxiety
     Route: 048
     Dates: start: 20200421
  4. FLONASE [Concomitant]
     Active Substance: FLUTICASONE PROPIONATE
     Indication: Rhinitis
     Dosage: 2 SPRAYS
     Route: 045
     Dates: start: 20200418
  5. GLYCOPYRROLATE [Concomitant]
     Active Substance: GLYCOPYRROLATE
     Indication: Salivary hypersecretion
     Route: 048
     Dates: start: 20200502
  6. MEMANTINE [Concomitant]
     Active Substance: MEMANTINE
     Indication: Dementia Alzheimer^s type
     Route: 048
     Dates: start: 20180808
  7. ARICEPT [Concomitant]
     Active Substance: DONEPEZIL HYDROCHLORIDE
     Indication: Cognitive disorder
     Route: 048
     Dates: start: 201405
  8. ATIVAN [Concomitant]
     Active Substance: LORAZEPAM
     Indication: Magnetic resonance imaging
     Route: 048
     Dates: start: 20210209

REACTIONS (2)
  - Amyloid related imaging abnormality-microhaemorrhages and haemosiderin deposits [Recovered/Resolved]
  - Amyloid related imaging abnormality-oedema/effusion [Recovered/Resolved]

NARRATIVE: CASE EVENT DATE: 20210423
